FAERS Safety Report 6274236-1 (Version None)
Quarter: 2009Q4

REPORT INFORMATION
  Report Type: 
  Country: None (occurrence: None)
  Receive Date: 20090720
  Receipt Date: 20090709
  Transmission Date: 20100525
  Serious: Yes (Hospitalization)
  Sender: FDA-Public Use
  Company Number: JP-ASTRAZENECA-2009SE02202

PATIENT
  Age: 89 Year
  Sex: Female
  Weight: 50 kg

DRUGS (3)
  1. ROPIVACAINE HYDROCHLORIDE [Suspect]
     Indication: EPIDURAL ANAESTHESIA
     Route: 008
     Dates: start: 20090601, end: 20090601
  2. BUPRENORPHINE HCL [Suspect]
     Indication: EPIDURAL ANAESTHESIA
     Route: 008
     Dates: start: 20090601, end: 20090601
  3. SOSEGON [Concomitant]
     Indication: ANAESTHESIA PROCEDURE
     Route: 042
     Dates: start: 20090601, end: 20090601

REACTIONS (2)
  - ALTERED STATE OF CONSCIOUSNESS [None]
  - DRUG TOXICITY [None]
